FAERS Safety Report 8983253 (Version 1)
Quarter: 2012Q4

REPORT INFORMATION
  Report Type: 
  Country: BR (occurrence: BR)
  Receive Date: 20121224
  Receipt Date: 20121224
  Transmission Date: 20130627
  Serious: Yes (Other)
  Sender: FDA-Public Use
  Company Number: PHHY2012BR117932

PATIENT
  Sex: Female

DRUGS (6)
  1. EXJADE [Suspect]
     Indication: IRON OVERLOAD
     Dosage: UNK UKN, UNK
     Dates: start: 201108, end: 201112
  2. FOLIC ACID [Concomitant]
     Dates: start: 1996
  3. ALLOPURINOL [Concomitant]
     Dates: start: 1996
  4. DIMETHICONE [Concomitant]
  5. CINNARIZINE [Concomitant]
  6. HYDROXYUREA [Concomitant]

REACTIONS (6)
  - Deafness [Not Recovered/Not Resolved]
  - Serum ferritin increased [Not Recovered/Not Resolved]
  - Upper limb fracture [Not Recovered/Not Resolved]
  - Fall [Not Recovered/Not Resolved]
  - Pruritus [Not Recovered/Not Resolved]
  - Erythema [Not Recovered/Not Resolved]
